FAERS Safety Report 26072030 (Version 2)
Quarter: 2025Q4

REPORT INFORMATION
  Report Type: Spontaneous
  Country: EU (occurrence: EU)
  Receive Date: 20251120
  Receipt Date: 20251202
  Transmission Date: 20260118
  Serious: Yes (Other)
  Sender: MYLAN
  Company Number: EU-PFIZER INC-2013163168

PATIENT
  Age: 82 Year
  Sex: Female

DRUGS (12)
  1. MIRTAZAPINE [Interacting]
     Active Substance: MIRTAZAPINE
     Indication: Product used for unknown indication
     Dosage: 15 MILLIGRAM, QD (DAILY)
  2. MIRTAZAPINE [Interacting]
     Active Substance: MIRTAZAPINE
     Dosage: 15 MILLIGRAM, QD (DAILY)
     Route: 065
  3. MIRTAZAPINE [Interacting]
     Active Substance: MIRTAZAPINE
     Dosage: 15 MILLIGRAM, QD (DAILY)
     Route: 065
  4. MIRTAZAPINE [Interacting]
     Active Substance: MIRTAZAPINE
     Dosage: 15 MILLIGRAM, QD (DAILY)
  5. RISPERIDONE [Interacting]
     Active Substance: RISPERIDONE
     Indication: Product used for unknown indication
     Dosage: 2 MILLIGRAM, QD (DAILY)
  6. RISPERIDONE [Interacting]
     Active Substance: RISPERIDONE
     Dosage: 2 MILLIGRAM, QD (DAILY)
     Route: 065
  7. RISPERIDONE [Interacting]
     Active Substance: RISPERIDONE
     Dosage: 2 MILLIGRAM, QD (DAILY)
     Route: 065
  8. RISPERIDONE [Interacting]
     Active Substance: RISPERIDONE
     Dosage: 2 MILLIGRAM, QD (DAILY)
  9. HALOPERIDOL [Interacting]
     Active Substance: HALOPERIDOL
     Indication: Product used for unknown indication
     Dosage: 0.5 MILLIGRAM, QD (DAILY)
  10. HALOPERIDOL [Interacting]
     Active Substance: HALOPERIDOL
     Dosage: 0.5 MILLIGRAM, QD (DAILY)
     Route: 065
  11. HALOPERIDOL [Interacting]
     Active Substance: HALOPERIDOL
     Dosage: 0.5 MILLIGRAM, QD (DAILY)
     Route: 065
  12. HALOPERIDOL [Interacting]
     Active Substance: HALOPERIDOL
     Dosage: 0.5 MILLIGRAM, QD (DAILY)

REACTIONS (3)
  - Hallucination, visual [Unknown]
  - Agitation [Unknown]
  - Drug interaction [Unknown]
